FAERS Safety Report 5660527-1 (Version None)
Quarter: 2008Q1

REPORT INFORMATION
  Report Type: 
  Country: None (occurrence: None)
  Receive Date: 20080311
  Receipt Date: 20071105
  Transmission Date: 20080703
  Serious: No
  Sender: FDA-Public Use
  Company Number: US-BAYER-200713636BCC

PATIENT
  Age: 73 Year
  Sex: Female
  Weight: 90 kg

DRUGS (3)
  1. ALEVE [Suspect]
     Indication: PAIN
     Route: 048
  2. LYRICA [Concomitant]
  3. ENABLEX [Concomitant]

REACTIONS (1)
  - PAIN [None]
